FAERS Safety Report 6900049-0 (Version None)
Quarter: 2010Q3

REPORT INFORMATION
  Report Type: 
  Country: None (occurrence: None)
  Receive Date: 20100708
  Receipt Date: 20100224
  Transmission Date: 20110219
  Serious: Yes (Other)
  Sender: FDA-Public Use
  Company Number: 2010013448

PATIENT
  Age: 58 Year
  Sex: Female
  Weight: 78.9 kg

DRUGS (1)
  1. CHANTIX [Suspect]
     Indication: SMOKING CESSATION THERAPY
     Dosage: DURATION 91 DAYS

REACTIONS (1)
  - DEPRESSION [None]
